FAERS Safety Report 19690517 (Version 1)
Quarter: 2021Q3

REPORT INFORMATION
  Report Type: Spontaneous
  Country: US (occurrence: US)
  Receive Date: 20210812
  Receipt Date: 20210812
  Transmission Date: 20211014
  Serious: Yes (Hospitalization, Other)
  Sender: FDA-Public Use
  Company Number: US-PFIZER INC-202100987321

PATIENT
  Age: 52 Year
  Sex: Female
  Weight: 57.6 kg

DRUGS (21)
  1. REMODULIN [Suspect]
     Active Substance: TREPROSTINIL
     Dosage: 1.0 MG/ML
     Route: 042
     Dates: start: 20200819
  2. ALBUMIN HUMAN [Concomitant]
     Active Substance: ALBUMIN HUMAN
     Dosage: UNK
  3. FUROSEMIDE. [Suspect]
     Active Substance: FUROSEMIDE
     Dosage: 120 MG, EVERY 1 WEEK,
     Route: 042
  4. SYNTHROID [Concomitant]
     Active Substance: LEVOTHYROXINE SODIUM
     Dosage: 0.025 MG
  5. ESTRACE [Concomitant]
     Active Substance: ESTRADIOL
     Dosage: UNK
  6. OPSUMIT [Concomitant]
     Active Substance: MACITENTAN
     Dosage: 10 MG
  7. OXYCODONE HYDROCHLORIDE. [Concomitant]
     Active Substance: OXYCODONE HYDROCHLORIDE
     Dosage: 10 MG
  8. FERROUS SULFATE. [Concomitant]
     Active Substance: FERROUS SULFATE
     Dosage: 325 MG
  9. HEPARIN FLUSH [Concomitant]
     Active Substance: HEPARIN SODIUM
     Dosage: 5 ML
  10. IMODIUM A?D [Concomitant]
     Active Substance: LOPERAMIDE HYDROCHLORIDE
     Dosage: 2 MG
  11. SEVELAMER [Concomitant]
     Active Substance: SEVELAMER
     Dosage: 800 MG
  12. DIGOXIN. [Concomitant]
     Active Substance: DIGOXIN
     Dosage: 125 UG
  13. SPIRONOLACTONE. [Suspect]
     Active Substance: SPIRONOLACTONE
     Dosage: 50 MG, 2X/DAY (BID)
     Route: 048
  14. REMODULIN [Suspect]
     Active Substance: TREPROSTINIL
     Indication: PULMONARY ARTERIAL HYPERTENSION
     Dosage: 0.035 MCG/KG, CONTINUING (RATE: 1.92 ML/HR)
     Route: 042
  15. KLONOPIN [Concomitant]
     Active Substance: CLONAZEPAM
     Dosage: UNK
  16. TADALAFIL. [Concomitant]
     Active Substance: TADALAFIL
     Dosage: 40 MG
  17. GLUCOSE [Concomitant]
     Active Substance: DEXTROSE
     Dosage: 4 G
  18. NORCO [Concomitant]
     Active Substance: ACETAMINOPHEN\HYDROCODONE BITARTRATE
     Dosage: UNK
  19. TORASEMIDE [Suspect]
     Active Substance: TORSEMIDE
     Dosage: 100 MG, 2X/DAY (BID WITH MEAL)
  20. DEXTROSE. [Concomitant]
     Active Substance: DEXTROSE
     Dosage: UNK
  21. SODIUM CHLORIDE. [Concomitant]
     Active Substance: SODIUM CHLORIDE
     Dosage: UNK

REACTIONS (3)
  - Hyponatraemia [Unknown]
  - Acute kidney injury [Unknown]
  - Weight decreased [Unknown]

NARRATIVE: CASE EVENT DATE: 20210719
